FAERS Safety Report 7296225-0 (Version None)
Quarter: 2011Q1

REPORT INFORMATION
  Report Type: 
  Country: None (occurrence: None)
  Receive Date: 20110211
  Receipt Date: 20110211
  Transmission Date: 20110831
  Serious: Yes (Hospitalization)
  Sender: FDA-Public Use
  Company Number: None

PATIENT
  Sex: Female
  Weight: 80 kg

DRUGS (8)
  1. LORAZEPAM [Concomitant]
  2. COMPAZINE [Concomitant]
  3. ASA [Concomitant]
  4. ZOFRAN [Concomitant]
  5. BACTIM DS [Concomitant]
  6. GEMCITABINE HYDROCHLORIDE [Suspect]
     Dosage: 5400 MG
     Dates: end: 20110203
  7. LOVENOX [Concomitant]
  8. PAXIL [Concomitant]

REACTIONS (21)
  - OEDEMA PERIPHERAL [None]
  - BLOOD GLUCOSE INCREASED [None]
  - SYNCOPE [None]
  - PLEURAL EFFUSION [None]
  - ASCITES [None]
  - ASTHENIA [None]
  - URINE OUTPUT DECREASED [None]
  - DYSPNOEA EXERTIONAL [None]
  - DRUG HYPERSENSITIVITY [None]
  - PROTEINURIA [None]
  - BACTERIURIA [None]
  - DIZZINESS [None]
  - NEPHROTIC SYNDROME [None]
  - ASPARTATE AMINOTRANSFERASE INCREASED [None]
  - GLUCOSE URINE [None]
  - THROMBOPHLEBITIS [None]
  - CHROMATURIA [None]
  - BLOOD SODIUM DECREASED [None]
  - PROTEIN TOTAL DECREASED [None]
  - PERICARDIAL EFFUSION [None]
  - GENERALISED OEDEMA [None]
